FAERS Safety Report 7795686-8 (Version None)
Quarter: 2011Q4

REPORT INFORMATION
  Report Type: 
  Country: None (occurrence: None)
  Receive Date: 20111004
  Receipt Date: 20110930
  Transmission Date: 20120403
  Serious: Yes (Hospitalization)
  Sender: FDA-Public Use
  Company Number: FR-GLAXOSMITHKLINE-B0752627A

PATIENT
  Sex: Female
  Weight: 94 kg

DRUGS (6)
  1. LERCANIDIPINE [Concomitant]
     Indication: HYPERTENSION
     Route: 048
  2. ALLOPURINOL [Concomitant]
     Indication: HYPERURICAEMIA
     Route: 048
  3. CRESTOR [Concomitant]
     Indication: HYPERCHOLESTEROLAEMIA
     Route: 048
  4. BISOPROLOL FUMARATE AND HYDROCHLOROTHIAZIDE [Concomitant]
     Indication: HYPERTENSION
     Route: 048
  5. LAPATINIB [Suspect]
     Indication: BREAST CANCER
     Dosage: 1000MG PER DAY
     Route: 048
     Dates: start: 20110922
  6. DOCETAXEL [Suspect]
     Indication: BREAST CANCER
     Dosage: 200MG CYCLIC
     Route: 042
     Dates: start: 20110922

REACTIONS (1)
  - FEBRILE NEUTROPENIA [None]
